FAERS Safety Report 16889762 (Version 1)
Quarter: 2019Q4

REPORT INFORMATION
  Report Type: Spontaneous
  Country: US (occurrence: US)
  Receive Date: 20191007
  Receipt Date: 20191007
  Transmission Date: 20200122
  Serious: Yes (Hospitalization)
  Sender: FDA-Public Use
  Company Number: US-ROCHE-2421446

PATIENT
  Sex: Male
  Weight: 27.06 kg

DRUGS (6)
  1. ADVAIR HFA [Concomitant]
     Active Substance: FLUTICASONE PROPIONATE\SALMETEROL XINAFOATE
     Dosage: ONGOING: UNKNOWN
     Route: 055
     Dates: start: 20180129
  2. PULMOZYME [Suspect]
     Active Substance: DORNASE ALFA
     Indication: CYSTIC FIBROSIS
     Route: 055
     Dates: start: 20180201
  3. ZANTAC 75 [Concomitant]
     Active Substance: RANITIDINE HYDROCHLORIDE
     Dosage: ONGOING: UNKNOWN
     Route: 048
     Dates: start: 20180129
  4. AZITHROMYCIN ANHYDROUS. [Concomitant]
     Active Substance: AZITHROMYCIN ANHYDROUS
     Dosage: ONGOING: UNKNOWN
     Route: 042
     Dates: start: 20180129
  5. CYPROHEPTADINE. [Concomitant]
     Active Substance: CYPROHEPTADINE
     Dosage: ONGOING: UNKNOWN
     Route: 048
     Dates: start: 20180129
  6. ALBUTEROL [SALBUTAMOL] [Concomitant]
     Active Substance: ALBUTEROL
     Route: 055
     Dates: start: 20180129, end: 20180802

REACTIONS (1)
  - Culture positive [Unknown]
